FAERS Safety Report 4430272-9 (Version None)
Quarter: 2004Q3

REPORT INFORMATION
  Report Type: 
  Country: None (occurrence: None)
  Receive Date: 20040820
  Receipt Date: 20040812
  Transmission Date: 20050211
  Serious: Yes (Disabling)
  Sender: FDA-Public Use
  Company Number: GB-GLAXOSMITHKLINE-B0342389A

PATIENT
  Sex: Female

DRUGS (6)
  1. PAROXETINE HCL [Suspect]
     Indication: ANXIETY
     Route: 048
     Dates: start: 20020622, end: 20040212
  2. CO-PROXAMOL [Concomitant]
     Indication: POLYARTHRITIS
     Route: 048
  3. THYROXINE [Concomitant]
     Indication: HYPOTHYROIDISM
     Dosage: 100MCG PER DAY
     Route: 048
     Dates: start: 19980101
  4. HUMATROPE [Concomitant]
     Route: 065
     Dates: start: 19980101
  5. HYDROCORTISONE [Concomitant]
     Dosage: 30MG PER DAY
     Route: 065
     Dates: start: 19980101
  6. CETIRIZINE HCL [Concomitant]
     Dosage: 10MG PER DAY
     Route: 065

REACTIONS (7)
  - DEPRESSION [None]
  - DRUG WITHDRAWAL SYNDROME [None]
  - FEELING ABNORMAL [None]
  - FLUSHING [None]
  - PARAESTHESIA [None]
  - SELF-MEDICATION [None]
  - SUICIDAL IDEATION [None]
